FAERS Safety Report 9137117 (Version 1)
Quarter: 2013Q1

REPORT INFORMATION
  Report Type: Spontaneous
  Country: US (occurrence: US)
  Receive Date: 20130219
  Receipt Date: 20130219
  Transmission Date: 20140127
  Serious: No
  Sender: FDA-Public Use
  Company Number: US-BRISTOL-MYERS SQUIBB COMPANY-16803041

PATIENT
  Age: 66 Year
  Sex: Male
  Weight: 122.45 kg

DRUGS (1)
  1. ABATACEPT SUBQ INJECTION 125MG/ML [Suspect]
     Indication: RHEUMATOID ARTHRITIS
     Dosage: USED FROM 2-3 MONTHS, RECENT INF 20JUL12,LAST INJ:AUG2012?LATE MAY-JUN2012
     Route: 058
     Dates: start: 2012

REACTIONS (4)
  - Drug ineffective [Unknown]
  - Dyspnoea [Unknown]
  - Pharyngitis [Unknown]
  - Weight decreased [Unknown]
